FAERS Safety Report 4871694-1 (Version None)
Quarter: 2006Q1

REPORT INFORMATION
  Report Type: 
  Country: None (occurrence: None)
  Receive Date: 20060104
  Receipt Date: 20051220
  Transmission Date: 20060701
  Serious: Yes (Hospitalization)
  Sender: FDA-Public Use
  Company Number: DEWYE250520DEC05

PATIENT
  Age: 55 Year
  Sex: Female

DRUGS (3)
  1. ENBREL [Suspect]
     Indication: RHEUMATOID ARTHRITIS
     Route: 058
     Dates: start: 20010801, end: 20050601
  2. LANTAREL [Suspect]
     Indication: RHEUMATOID ARTHRITIS
     Dates: start: 19891101
  3. PREDNISOLONE [Concomitant]
     Dosage: UNKNOWN

REACTIONS (1)
  - CYSTITIS NONINFECTIVE [None]
